FAERS Safety Report 9432172 (Version 2)
Quarter: 2013Q3

REPORT INFORMATION
  Report Type: Spontaneous
  Country: PL (occurrence: None)
  Receive Date: 20130726
  Receipt Date: 20130820
  Transmission Date: 20140515
  Serious: Yes (Other)
  Sender: FDA-Public Use
  Company Number: AUR-APL-2013-06219

PATIENT
  Age: 61 Year
  Sex: Female

DRUGS (6)
  1. PIPERACILLIN+TAZOBACTAM [Suspect]
     Indication: PRODUCT USED FOR UNKNOWN INDICATION
  2. CIPROFLOXACIN [Suspect]
     Indication: PRODUCT USED FOR UNKNOWN INDICATION
  3. CEFOTAXIME [Suspect]
     Indication: PRODUCT USED FOR UNKNOWN INDICATION
  4. AMPICILLIN - SULBACTAM [Suspect]
     Indication: PRODUCT USED FOR UNKNOWN INDICATION
  5. AMIKACIN [Suspect]
     Indication: PRODUCT USED FOR UNKNOWN INDICATION
  6. VANCOMYCIN [Suspect]
     Indication: PRODUCT USED FOR UNKNOWN INDICATION

REACTIONS (2)
  - Nosocomial infection [None]
  - Clostridium difficile infection [None]
